FAERS Safety Report 5958576-9 (Version None)
Quarter: 2008Q4

REPORT INFORMATION
  Report Type: 
  Country: None (occurrence: None)
  Receive Date: 20081119
  Receipt Date: 20081112
  Transmission Date: 20090506
  Serious: Yes (Other)
  Sender: FDA-Public Use
  Company Number: BE-ASTRAZENECA-2008AC02929

PATIENT
  Age: 6 Week
  Sex: Female

DRUGS (2)
  1. LOSEC MUPS [Suspect]
     Indication: GASTROOESOPHAGEAL REFLUX DISEASE
     Route: 048
  2. LOSEC MUPS [Suspect]
     Route: 048

REACTIONS (5)
  - ABDOMINAL PAIN [None]
  - DRUG PRESCRIBING ERROR [None]
  - INCORRECT DOSE ADMINISTERED [None]
  - OFF LABEL USE [None]
  - VOMITING [None]
